FAERS Safety Report 15264972 (Version 1)
Quarter: 2018Q3

REPORT INFORMATION
  Report Type: Spontaneous
  Country: US (occurrence: US)
  Receive Date: 20180810
  Receipt Date: 20180810
  Transmission Date: 20181010
  Serious: No
  Sender: FDA-Public Use
  Company Number: US-BAYER-2018-147613

PATIENT
  Age: 71 Year
  Sex: Female
  Weight: 68 kg

DRUGS (4)
  1. ALEVE [Suspect]
     Active Substance: NAPROXEN SODIUM
     Indication: PAIN
     Dosage: 2 DF, BID
     Route: 048
     Dates: start: 20180803
  2. TYLENOL [Concomitant]
     Active Substance: ACETAMINOPHEN
  3. TOPISOLON [DESOXIMETASONE,SALICYLIC ACID] [Concomitant]
  4. PRESERVISION EYE VITAMIN AND MINERAL SUPPL. [Concomitant]

REACTIONS (1)
  - Drug ineffective [Unknown]

NARRATIVE: CASE EVENT DATE: 20180803
